FAERS Safety Report 6819730-7 (Version None)
Quarter: 2010Q3

REPORT INFORMATION
  Report Type: 
  Country: None (occurrence: None)
  Receive Date: 20100707
  Receipt Date: 20091020
  Transmission Date: 20110219
  Serious: No
  Sender: FDA-Public Use
  Company Number: US-PFIZER INC-2009265134

PATIENT
  Sex: Male
  Weight: 71.202 kg

DRUGS (17)
  1. NITROSTAT [Suspect]
     Indication: CHEST PAIN
     Route: 060
  2. NITROSTAT [Suspect]
     Indication: PARAESTHESIA
  3. ENALAPRIL MALEATE [Concomitant]
     Indication: BLOOD PRESSURE ABNORMAL
     Dosage: 5 MG, 1X/DAY
     Route: 048
  4. FUROSEMIDE [Concomitant]
     Indication: FLUID RETENTION
     Dosage: FREQUENCY: 2X/DAY,
     Route: 048
  5. LEVOTHYROXINE SODIUM [Concomitant]
     Indication: HYPOTHYROIDISM
     Dosage: 0.125 MG, 1X/DAY
     Route: 048
  6. COREG [Concomitant]
     Indication: CARDIAC DISORDER
     Dosage: FREQUENCY: 2X/DAY,
     Route: 048
  7. SIMVASTATIN [Concomitant]
     Indication: BLOOD CHOLESTEROL INCREASED
     Dosage: 80 MG, 1X/DAY
     Route: 048
  8. PLAVIX [Concomitant]
     Indication: BLOOD DISORDER
     Dosage: 75 MG, 1X/DAY
     Route: 048
  9. IRON [Concomitant]
     Dosage: UNK
     Route: 048
  10. VITAMINS [Concomitant]
     Dosage: UNK
     Route: 048
  11. CALCIUM CARBONATE [Concomitant]
     Dosage: UNK
     Route: 048
  12. OXYCODONE HCL [Concomitant]
     Indication: ARTHRITIS
     Dosage: 15 MG, 1X/DAY
     Route: 048
  13. MORPHINE [Concomitant]
     Indication: ARTHRITIS
     Dosage: 15 MG, 1X/DAY
     Route: 048
  14. MEGACE [Concomitant]
     Indication: DECREASED APPETITE
     Dosage: 10 ML, 1X/DAY
     Route: 048
  15. PRILOSEC [Concomitant]
     Indication: DYSPEPSIA
     Dosage: 20 MG, 1X/DAY
     Route: 048
  16. FOSAMAX [Concomitant]
     Dosage: 35 MG, 1X/DAY
     Route: 048
  17. ARANESP [Concomitant]
     Dosage: UNK

REACTIONS (1)
  - DRUG INEFFECTIVE [None]
